FAERS Safety Report 18761417 (Version 2)
Quarter: 2025Q3

REPORT INFORMATION
  Report Type: Spontaneous
  Country: EU (occurrence: EU)
  Receive Date: 20210119
  Receipt Date: 20250726
  Transmission Date: 20251021
  Serious: Yes (Hospitalization, Other)
  Sender: AUROBINDO
  Company Number: EU-ESTEVE-2021-00010

PATIENT
  Age: 52 Year
  Sex: Male

DRUGS (15)
  1. FLUOXETINE [Suspect]
     Active Substance: FLUOXETINE HYDROCHLORIDE
     Indication: Major depression
     Route: 065
  2. BIPERIDEN [Suspect]
     Active Substance: BIPERIDEN
     Indication: Schizophrenia
     Dosage: 2 MILLIGRAM, ONCE A DAY
     Route: 065
  3. BIPERIDEN [Suspect]
     Active Substance: BIPERIDEN
     Dosage: 4 MILLIGRAM, ONCE A DAY
     Route: 065
  4. CLOMIPRAMINE [Suspect]
     Active Substance: CLOMIPRAMINE
     Indication: Product used for unknown indication
     Dosage: 37.5 MILLIGRAM, ONCE A DAY
     Route: 065
  5. CLOTHIAPINE [Suspect]
     Active Substance: CLOTHIAPINE
     Indication: Product used for unknown indication
     Dosage: 40 MILLIGRAM, ONCE A DAY
     Route: 065
  6. CLORAZEPATE DIPOTASSIUM [Suspect]
     Active Substance: CLORAZEPATE DIPOTASSIUM
     Indication: Anxiolytic therapy
     Dosage: 45 MILLIGRAM, ONCE A DAY
     Route: 065
  7. CLORAZEPATE DIPOTASSIUM [Suspect]
     Active Substance: CLORAZEPATE DIPOTASSIUM
     Dosage: 15 MILLIGRAM, ONCE A DAY
     Route: 065
  8. CLORAZEPATE DIPOTASSIUM [Suspect]
     Active Substance: CLORAZEPATE DIPOTASSIUM
     Dosage: 25 MILLIGRAM, ONCE A DAY
     Route: 065
  9. FLUPHENAZINE [Suspect]
     Active Substance: FLUPHENAZINE
     Indication: Schizophrenia
     Route: 065
  10. HALOPERIDOL [Suspect]
     Active Substance: HALOPERIDOL
     Indication: Schizophrenia
     Dosage: 10 MILLIGRAM, ONCE A DAY
     Route: 065
  11. LORMETAZEPAM [Suspect]
     Active Substance: LORMETAZEPAM
     Indication: Hypnotherapy
     Dosage: 2 MILLIGRAM, ONCE A DAY
     Route: 065
  12. LORMETAZEPAM [Suspect]
     Active Substance: LORMETAZEPAM
     Indication: Sedative therapy
  13. MIRTAZAPINE [Concomitant]
     Active Substance: MIRTAZAPINE
     Indication: Stupor
     Route: 065
  14. MIRTAZAPINE [Concomitant]
     Active Substance: MIRTAZAPINE
     Dosage: 45 MILLIGRAM, ONCE A DAY
     Route: 065
  15. MIRTAZAPINE [Concomitant]
     Active Substance: MIRTAZAPINE
     Dosage: 60 MILLIGRAM, ONCE A DAY
     Route: 065

REACTIONS (12)
  - Akinesia [Recovering/Resolving]
  - Incontinence [Recovered/Resolved]
  - Mutism [Recovering/Resolving]
  - Psychomotor skills impaired [Recovering/Resolving]
  - Decreased appetite [Recovering/Resolving]
  - Musculoskeletal stiffness [Recovering/Resolving]
  - Stupor [Recovering/Resolving]
  - Delusion [Recovering/Resolving]
  - Poor personal hygiene [Recovering/Resolving]
  - Social avoidant behaviour [Recovering/Resolving]
  - Illness anxiety disorder [Recovering/Resolving]
  - Insomnia [Recovering/Resolving]
